FAERS Safety Report 20483920 (Version 1)
Quarter: 2022Q1

REPORT INFORMATION
  Report Type: Report from Study
  Country: MX (occurrence: MX)
  Receive Date: 20220217
  Receipt Date: 20220217
  Transmission Date: 20220423
  Serious: Yes (Life-Threatening)
  Sender: FDA-Public Use
  Company Number: MX-NOVARTISPH-NVSC2022MX035430

PATIENT
  Sex: Female
  Weight: 110 kg

DRUGS (5)
  1. HYDROCHLOROTHIAZIDE\VALSARTAN [Suspect]
     Active Substance: HYDROCHLOROTHIAZIDE\VALSARTAN
     Indication: Hypertension
     Dosage: 1 DOSAGE FORM, Q48H
     Route: 048
     Dates: start: 2021, end: 202112
  2. HYDROCHLOROTHIAZIDE\VALSARTAN [Suspect]
     Active Substance: HYDROCHLOROTHIAZIDE\VALSARTAN
     Dosage: 1 DOSAGE FORM, QD
     Route: 048
  3. DIOVAN [Suspect]
     Active Substance: VALSARTAN
     Indication: Hypertension
     Dosage: 1 DOSAGE FORM, QD
     Route: 048
     Dates: start: 2021
  4. DIOVAN [Suspect]
     Active Substance: VALSARTAN
     Dosage: 1 DOSAGE FORM, Q48H
     Route: 048
     Dates: start: 2021, end: 202112
  5. DIOVAN [Suspect]
     Active Substance: VALSARTAN
     Dosage: 1 DOSAGE FORM, QD
     Route: 048

REACTIONS (4)
  - Body mass index increased [Unknown]
  - Obesity [Unknown]
  - Hypertension [Not Recovered/Not Resolved]
  - Off label use [Recovered/Resolved]

NARRATIVE: CASE EVENT DATE: 20210101
